FAERS Safety Report 4538893-X (Version None)
Quarter: 2004Q4

REPORT INFORMATION
  Report Type: 
  Country: None (occurrence: None)
  Receive Date: 20041227
  Receipt Date: 20041221
  Transmission Date: 20050328
  Serious: Yes (Hospitalization)
  Sender: FDA-Public Use
  Company Number: JP-ABBOTT-04P-087-0284408-00

PATIENT
  Sex: Male

DRUGS (2)
  1. KLARICID [Suspect]
     Indication: SINUSITIS
     Route: 048
     Dates: start: 20041101, end: 20041206
  2. PRONASE [Concomitant]
     Indication: DRUG USE FOR UNKNOWN INDICATION
     Route: 048
     Dates: start: 20041101, end: 20041206

REACTIONS (6)
  - CHILLS [None]
  - DEHYDRATION [None]
  - LOCALISED OEDEMA [None]
  - PHARYNGOLARYNGEAL PAIN [None]
  - PYREXIA [None]
  - RASH [None]
